FAERS Safety Report 15038577 (Version 2)
Quarter: 2018Q3

REPORT INFORMATION
  Report Type: Report from Study
  Country: US (occurrence: US)
  Receive Date: 20180620
  Receipt Date: 20180709
  Transmission Date: 20181010
  Serious: Yes (Death, Disabling, Other)
  Sender: FDA-Public Use
  Company Number: US-GILEAD-2018-0344224

PATIENT
  Age: 73 Year
  Sex: Female
  Weight: 57.14 kg

DRUGS (7)
  1. AMBRISENTAN [Suspect]
     Active Substance: AMBRISENTAN
     Indication: PRODUCT USED FOR UNKNOWN INDICATION
     Dosage: 5 MG, QD
     Route: 065
     Dates: start: 20180524
  2. NEBIVOLOL. [Concomitant]
     Active Substance: NEBIVOLOL
  3. ALDACTONE [Concomitant]
     Active Substance: SPIRONOLACTONE
  4. XARELTO [Concomitant]
     Active Substance: RIVAROXABAN
  5. LASIX [Concomitant]
     Active Substance: FUROSEMIDE
  6. COUMADIN [Concomitant]
     Active Substance: WARFARIN SODIUM
  7. OXYGEN. [Concomitant]
     Active Substance: OXYGEN

REACTIONS (9)
  - Abdominal distension [Unknown]
  - Atrial fibrillation [Not Recovered/Not Resolved]
  - Gastrointestinal infection [Unknown]
  - Cardiac failure [Fatal]
  - Liver function test abnormal [Unknown]
  - Peritonitis [Fatal]
  - Coronary artery disease [Not Recovered/Not Resolved]
  - Sepsis [Unknown]
  - Hepatic steatosis [Unknown]

NARRATIVE: CASE EVENT DATE: 20130101
